FAERS Safety Report 9507005 (Version 1)
Quarter: 2013Q3

REPORT INFORMATION
  Report Type: Spontaneous
  Country: DE (occurrence: None)
  Receive Date: 20130904
  Receipt Date: 20130904
  Transmission Date: 20140515
  Serious: Yes (Other)
  Sender: FDA-Public Use
  Company Number: AUR-APL-2013-07182

PATIENT
  Age: 63 Year
  Sex: Male

DRUGS (3)
  1. GABAPENTIN (GABAPENTIN) [Suspect]
     Indication: POLYNEUROPATHY
     Dosage: 3600 MG (900 MG,4 IN 1 D)
     Route: 048
  2. HCT (HYDROCHLOROTHIAZIDE) [Concomitant]
  3. FERRO SANOL (FERROUS GLUCONATE) [Concomitant]

REACTIONS (1)
  - Electrocardiogram QT prolonged [None]
